FAERS Safety Report 25318864 (Version 6)
Quarter: 2025Q3

REPORT INFORMATION
  Report Type: Spontaneous
  Country: JP (occurrence: JP)
  Receive Date: 20250515
  Receipt Date: 20250711
  Transmission Date: 20251021
  Serious: Yes (Life-Threatening, Hospitalization)
  Sender: AMGEN
  Company Number: JP-AMGEN-JPNSP2025082894

PATIENT
  Age: 63 Year
  Sex: Male

DRUGS (5)
  1. IMDELLTRA [Suspect]
     Active Substance: TARLATAMAB-DLLE
     Indication: Small cell lung cancer
     Route: 040
     Dates: start: 20250423
  2. IMDELLTRA [Suspect]
     Active Substance: TARLATAMAB-DLLE
     Route: 040
     Dates: start: 20250430, end: 20250507
  3. OXYCODONE [Suspect]
     Active Substance: OXYCODONE
     Indication: Analgesic therapy
     Route: 065
  4. OXYCODONE [Suspect]
     Active Substance: OXYCODONE
     Route: 065
     Dates: end: 20250423
  5. OXYCODONE [Suspect]
     Active Substance: OXYCODONE
     Route: 065
     Dates: start: 20250424

REACTIONS (7)
  - Cytokine release syndrome [Recovered/Resolved]
  - Small cell lung cancer [Unknown]
  - Aspiration [Recovered/Resolved]
  - Infection [Unknown]
  - Disorientation [Unknown]
  - Feeling abnormal [Not Recovered/Not Resolved]
  - Urinary incontinence [Unknown]

NARRATIVE: CASE EVENT DATE: 20250401
